FAERS Safety Report 19660216 (Version 1)
Quarter: 2021Q3

REPORT INFORMATION
  Report Type: Spontaneous
  Country: US (occurrence: US)
  Receive Date: 20210805
  Receipt Date: 20210805
  Transmission Date: 20211014
  Serious: Yes (Hospitalization)
  Sender: FDA-Public Use
  Company Number: US-MYLANLABS-2021M1047925

PATIENT
  Age: 54 Year
  Sex: Female

DRUGS (1)
  1. TOPIRAMATE. [Suspect]
     Active Substance: TOPIRAMATE
     Indication: BACK PAIN
     Dosage: 6 DOSAGE FORM, ONCE, STARTED ABOUT 2 WEEKS AGO, RECEIVED INTERMITTENTLY
     Route: 065

REACTIONS (4)
  - Off label use [Unknown]
  - Angle closure glaucoma [Recovering/Resolving]
  - Myopia [Recovering/Resolving]
  - Idiosyncratic drug reaction [Recovering/Resolving]
